FAERS Safety Report 6741259-5 (Version None)
Quarter: 2010Q2

REPORT INFORMATION
  Report Type: 
  Country: None (occurrence: None)
  Receive Date: 20100526
  Receipt Date: 20100520
  Transmission Date: 20101027
  Serious: Yes (Life-Threatening)
  Sender: FDA-Public Use
  Company Number: JP-BAYER-200912609BYL

PATIENT
  Age: 49 Year
  Sex: Female

DRUGS (6)
  1. NEXAVAR [Suspect]
     Indication: HEPATIC NEOPLASM MALIGNANT
     Dosage: TOTAL DAILY DOSE: 800 MG  UNIT DOSE: 200 MG
     Route: 048
     Dates: start: 20090630, end: 20090721
  2. AMINOLEBAN EN [Concomitant]
     Route: 048
     Dates: start: 20081125
  3. PORTOLAC [Concomitant]
     Route: 048
     Dates: start: 20081021
  4. URSO 250 [Concomitant]
     Route: 048
     Dates: start: 20081021, end: 20090721
  5. LASIX [Concomitant]
     Route: 048
     Dates: start: 20081021
  6. ALDACTONE [Concomitant]
     Route: 048
     Dates: start: 20081216

REACTIONS (3)
  - HEPATIC ENCEPHALOPATHY [None]
  - LARGE INTESTINAL HAEMORRHAGE [None]
  - PALMAR-PLANTAR ERYTHRODYSAESTHESIA SYNDROME [None]
